FAERS Safety Report 16303740 (Version 7)
Quarter: 2023Q2

REPORT INFORMATION
  Report Type: Report from Study
  Country: CA (occurrence: CA)
  Receive Date: 20190513
  Receipt Date: 20230411
  Transmission Date: 20230722
  Serious: Yes (Hospitalization)
  Sender: FDA-Public Use
  Company Number: CA-GLAXOSMITHKLINE-CA2019GSK081494

PATIENT

DRUGS (10)
  1. ALBUTEROL SULFATE [Suspect]
     Active Substance: ALBUTEROL SULFATE
     Indication: Product used for unknown indication
     Dosage: UNK UNK, PRN
  2. SINGULAIR [Suspect]
     Active Substance: MONTELUKAST SODIUM
     Indication: Product used for unknown indication
     Dosage: 10 MG, QD
  3. CETIRIZINE HYDROCHLORIDE [Suspect]
     Active Substance: CETIRIZINE HYDROCHLORIDE
     Indication: Product used for unknown indication
     Dosage: 10 MG, QD
  4. SYMBICORT [Suspect]
     Active Substance: BUDESONIDE\FORMOTEROL FUMARATE DIHYDRATE
     Indication: Product used for unknown indication
     Dosage: 2 PUFF(S), BID
     Route: 055
  5. ALVESCO [Suspect]
     Active Substance: CICLESONIDE
     Indication: Product used for unknown indication
     Dosage: UNK UNK, BID
  6. PREDNISONE [Suspect]
     Active Substance: PREDNISONE
     Indication: Asthma
     Dosage: UNK
  7. PREDNISONE [Suspect]
     Active Substance: PREDNISONE
     Indication: Wheezing
  8. PREDNISONE [Suspect]
     Active Substance: PREDNISONE
     Indication: Cough
  9. PREDNISONE [Suspect]
     Active Substance: PREDNISONE
     Indication: Dyspnoea
  10. CORTICOSTEROID NOS [Concomitant]
     Active Substance: CORTICOSTEROID NOS
     Indication: Product used for unknown indication
     Dosage: UNK

REACTIONS (12)
  - Asthma [Recovering/Resolving]
  - Therapeutic product effect incomplete [Unknown]
  - Exposure during pregnancy [Unknown]
  - Maternal exposure during breast feeding [Unknown]
  - Full blood count abnormal [Unknown]
  - Dyspnoea [Recovering/Resolving]
  - Wheezing [Recovering/Resolving]
  - Pleuritic pain [Unknown]
  - Abdominal discomfort [Unknown]
  - Abdominal tenderness [Unknown]
  - Cough [Recovering/Resolving]
  - Live birth [Unknown]
